APPROVED DRUG PRODUCT: ELEPSIA XR
Active Ingredient: LEVETIRACETAM
Strength: 1.5GM
Dosage Form/Route: TABLET, EXTENDED RELEASE;ORAL
Application: N204417 | Product #002
Applicant: TRIPOINT THERAPEUTICS
Approved: Dec 20, 2018 | RLD: Yes | RS: No | Type: DISCN

PATENTS:
Patent 8163306 | Expires: Sep 3, 2027
Patent 8535717 | Expires: Feb 22, 2026
Patent 8431156 | Expires: Oct 31, 2027
Patent 8470367 | Expires: Oct 31, 2027
Patent 8425938 | Expires: Feb 22, 2026